FAERS Safety Report 6746224-X (Version None)
Quarter: 2010Q2

REPORT INFORMATION
  Report Type: 
  Country: None (occurrence: None)
  Receive Date: 20100528
  Receipt Date: 20090624
  Transmission Date: 20101027
  Serious: No
  Sender: FDA-Public Use
  Company Number: US-ASTRAZENECA-2009SE13294

PATIENT
  Sex: Male

DRUGS (2)
  1. PRILOSEC [Suspect]
     Dosage: UNKNOWN
     Route: 048
  2. PRILOSEC OTC [Suspect]
     Dosage: UNKNOWN
     Route: 048

REACTIONS (2)
  - BENIGN BREAST NEOPLASM [None]
  - GYNAECOMASTIA [None]
